FAERS Safety Report 15068193 (Version 2)
Quarter: 2018Q4

REPORT INFORMATION
  Report Type: Report from Study
  Country: AU (occurrence: AU)
  Receive Date: 20180626
  Receipt Date: 20181101
  Transmission Date: 20190204
  Serious: Yes (Hospitalization)
  Sender: FDA-Public Use
  Company Number: AU-MYLANLABS-2018M1046387

PATIENT
  Age: 39 Year
  Sex: Male

DRUGS (1)
  1. CLOZARIL [Suspect]
     Active Substance: CLOZAPINE
     Indication: SCHIZOPHRENIA
     Dosage: UNK
     Route: 048
     Dates: start: 20020226, end: 201806

REACTIONS (4)
  - Affect lability [Unknown]
  - Emergency care [Unknown]
  - Mental disorder [Unknown]
  - Delusion [Unknown]

NARRATIVE: CASE EVENT DATE: 201806
